FAERS Safety Report 19395069 (Version 1)
Quarter: 2021Q2

REPORT INFORMATION
  Report Type: Spontaneous
  Country: MA (occurrence: MA)
  Receive Date: 20210609
  Receipt Date: 20210609
  Transmission Date: 20210717
  Serious: Yes (Other)
  Sender: FDA-Public Use
  Company Number: MA-SA-2021SA182897

PATIENT
  Age: 67 Year
  Sex: Male

DRUGS (1)
  1. TAMSULOSINE WINTHROP LP [Suspect]
     Active Substance: TAMSULOSIN HYDROCHLORIDE
     Dosage: UNK
     Route: 065

REACTIONS (3)
  - Heart rate increased [Unknown]
  - Vision blurred [Unknown]
  - Eye disorder [Unknown]
